FAERS Safety Report 7622032-2 (Version None)
Quarter: 2011Q3

REPORT INFORMATION
  Report Type: 
  Country: None (occurrence: None)
  Receive Date: 20110720
  Receipt Date: 20101223
  Transmission Date: 20111222
  Serious: Yes (Other)
  Sender: FDA-Public Use
  Company Number: US-BAYER-200928473NA

PATIENT
  Age: 19 Year
  Sex: Female
  Weight: 75.283 kg

DRUGS (1)
  1. MIRENA [Suspect]
     Indication: CONTRACEPTION
     Dosage: CONTINUOUS
     Route: 015
     Dates: start: 20080214, end: 20090504

REACTIONS (3)
  - DIAGNOSTIC PROCEDURE [None]
  - PREGNANCY WITH CONTRACEPTIVE DEVICE [None]
  - PREMATURE LABOUR [None]
